FAERS Safety Report 17886194 (Version 3)
Quarter: 2022Q1

REPORT INFORMATION
  Report Type: Spontaneous
  Country: CA (occurrence: CA)
  Receive Date: 20200611
  Receipt Date: 20220330
  Transmission Date: 20220424
  Serious: Yes (Other)
  Sender: FDA-Public Use
  Company Number: CA-PFIZER INC-2020139439

PATIENT
  Age: 47 Year
  Sex: Female

DRUGS (2)
  1. XELJANZ [Suspect]
     Active Substance: TOFACITINIB CITRATE
     Indication: Rheumatoid arthritis
     Dosage: 5 MG, 2X/DAY
     Route: 048
     Dates: start: 20200101, end: 2022
  2. LEFLUNOMIDE [Concomitant]
     Active Substance: LEFLUNOMIDE
     Dosage: 1 DF
     Route: 065

REACTIONS (15)
  - Pyogenic granuloma [Unknown]
  - Rheumatoid arthritis [Unknown]
  - Portal vein thrombosis [Unknown]
  - Intervertebral discitis [Not Recovered/Not Resolved]
  - Osteomyelitis [Unknown]
  - Drug ineffective [Unknown]
  - Oral herpes [Unknown]
  - Spinal disorder [Unknown]
  - Psoriasis [Unknown]
  - Joint swelling [Unknown]
  - Pain [Unknown]
  - Condition aggravated [Unknown]
  - Arthropathy [Unknown]
  - Skin disorder [Unknown]
  - Arthralgia [Unknown]
